FAERS Safety Report 4822011-4 (Version None)
Quarter: 2005Q4

REPORT INFORMATION
  Report Type: 
  Country: None (occurrence: None)
  Receive Date: 20051107
  Receipt Date: 20051028
  Transmission Date: 20060501
  Serious: Yes (Other)
  Sender: FDA-Public Use
  Company Number: GB-JNJFOC-20050403627

PATIENT
  Age: 65 Year
  Sex: Female

DRUGS (2)
  1. SPORANOX [Suspect]
     Indication: FUNGAL INFECTION
     Dates: end: 20050201
  2. FELODIPINE [Concomitant]
     Route: 065

REACTIONS (9)
  - BLOOD PRESSURE INCREASED [None]
  - DISEASE RECURRENCE [None]
  - DYSPNOEA [None]
  - FATIGUE [None]
  - FUNGAL INFECTION [None]
  - GASTROOESOPHAGEAL REFLUX DISEASE [None]
  - GENERALISED OEDEMA [None]
  - JOINT SWELLING [None]
  - STOMACH DISCOMFORT [None]
